FAERS Safety Report 11576504 (Version 1)
Quarter: 2015Q3

REPORT INFORMATION
  Report Type: Spontaneous
  Country: FR (occurrence: FR)
  Receive Date: 20150930
  Receipt Date: 20150930
  Transmission Date: 20151125
  Serious: Yes (Life-Threatening, Hospitalization, Other)
  Sender: FDA-Public Use
  Company Number: FR-PFIZER INC-2015320036

PATIENT
  Age: 78 Year
  Sex: Female

DRUGS (12)
  1. LYRICA [Suspect]
     Active Substance: PREGABALIN
     Dosage: 100 MG, 3X/DAY
     Route: 048
  2. UVEDOSE [Concomitant]
     Active Substance: CHOLECALCIFEROL
  3. FUROSEMIDE. [Concomitant]
     Active Substance: FUROSEMIDE
     Dosage: 40 MG, 2X/DAY
  4. NOVORAPID [Concomitant]
     Active Substance: INSULIN ASPART
  5. LERCANIDIPINE [Concomitant]
     Active Substance: LERCANIDIPINE
     Dosage: 20 MG, UNK
  6. DUROGESIC [Suspect]
     Active Substance: FENTANYL
     Dosage: 1 PATCH EVERY 72 HOURS, 50 MICROGRAMS/HOUR (8.4 MG/21 CM2)
     Route: 062
  7. VITAMIN B1 AND B6 [Concomitant]
     Active Substance: PYRIDOXINE HYDROCHLORIDE\THIAMINE HYDROCHLORIDE
     Dosage: 1 DF, 1X/DAY
  8. PRAXILENE [Concomitant]
     Active Substance: NAFRONYL
     Dosage: 200 MG, 2X/DAY
  9. INSULATARD /00646002/ [Concomitant]
     Active Substance: INSULIN NOS
  10. ESOMEPRAZOLE [Concomitant]
     Active Substance: ESOMEPRAZOLE
     Dosage: 20 MG, DAILY
  11. KALEORID [Concomitant]
     Active Substance: POTASSIUM CHLORIDE
  12. CALCIUM AND VIT D [Concomitant]
     Active Substance: CALCIUM\VITAMIN D

REACTIONS (6)
  - Inflammation [Recovered/Resolved]
  - Rhabdomyolysis [Recovered/Resolved]
  - Bacteraemia [Recovered/Resolved]
  - Urinary tract infection bacterial [Recovered/Resolved]
  - Infection [Recovered/Resolved]
  - Fall [Unknown]

NARRATIVE: CASE EVENT DATE: 201508
